FAERS Safety Report 25135069 (Version 3)
Quarter: 2025Q2

REPORT INFORMATION
  Report Type: Spontaneous
  Country: US (occurrence: US)
  Receive Date: 20250328
  Receipt Date: 20250528
  Transmission Date: 20250716
  Serious: Yes (Death, Hospitalization)
  Sender: PFIZER
  Company Number: US-PFIZER INC-202500066306

PATIENT

DRUGS (2)
  1. HEPARIN SODIUM [Suspect]
     Active Substance: HEPARIN SODIUM
     Indication: Endocarditis
  2. APIXABAN [Concomitant]
     Active Substance: APIXABAN
     Indication: Endocarditis

REACTIONS (2)
  - Haemorrhage [Fatal]
  - Off label use [Unknown]
